FAERS Safety Report 6164958-5 (Version None)
Quarter: 2009Q2

REPORT INFORMATION
  Report Type: 
  Country: None (occurrence: None)
  Receive Date: 20090421
  Receipt Date: 20090406
  Transmission Date: 20091009
  Serious: Yes (Death)
  Sender: FDA-Public Use
  Company Number: 2009S1006133

PATIENT
  Age: 79 Year
  Sex: Male
  Weight: 68.4 kg

DRUGS (9)
  1. ALENDRONATE SODIUM [Suspect]
     Indication: DRUG USE FOR UNKNOWN INDICATION
     Dosage: 70 MG;WEEKLY;ORAL
     Route: 048
     Dates: start: 20081114
  2. AZATHIOPRINE [Suspect]
     Indication: IDIOPATHIC PULMONARY FIBROSIS
     Dosage: 125 MG;DAILY;ORAL
     Route: 048
     Dates: start: 20081114, end: 20081226
  3. OMEPRAZOLE [Suspect]
     Indication: DRUG USE FOR UNKNOWN INDICATION
     Dosage: ORAL
     Route: 048
     Dates: start: 20081114
  4. ACETYLCYSTEINE [Suspect]
     Indication: IDIOPATHIC PULMONARY FIBROSIS
     Dosage: 600 MG;3 TIMES A DAY;ORAL
     Route: 048
     Dates: start: 20081114, end: 20081226
  5. WARFARIN [Concomitant]
  6. AMIODARONE [Concomitant]
  7. ATORVASTATIN [Concomitant]
  8. CANDESARTAN [Concomitant]
  9. PREDNISOLONE [Suspect]
     Indication: DRUG USE FOR UNKNOWN INDICATION

REACTIONS (3)
  - NEUTROPENIA [None]
  - SEPSIS [None]
  - TOXIC EPIDERMAL NECROLYSIS [None]
